FAERS Safety Report 9816601 (Version 3)
Quarter: 2014Q1

REPORT INFORMATION
  Report Type: Spontaneous
  Country: IT (occurrence: IT)
  Receive Date: 20140114
  Receipt Date: 20140131
  Transmission Date: 20141002
  Serious: Yes (Other)
  Sender: FDA-Public Use
  Company Number: IT-PFIZER INC-2014007431

PATIENT
  Age: 69 Year
  Sex: Male

DRUGS (3)
  1. SUTENT [Suspect]
     Indication: RENAL CELL CARCINOMA
     Dosage: 50 MG, CYCLIC (4 WEEKS ON/2 WEEKS OFF)
  2. SUTENT [Suspect]
     Dosage: 37.5 MG, CYCLIC (4 WEEKS ON/2 WEEKS OFF)
     Dates: start: 201009, end: 201111
  3. SUTENT [Suspect]
     Dosage: 37.5 MG, CYCLIC (4 WEEKS ON/2 WEEKS OFF)
     Dates: start: 201209

REACTIONS (4)
  - Salivary gland calculus [Recovered/Resolved]
  - Palmar-plantar erythrodysaesthesia syndrome [Recovered/Resolved]
  - Thrombocytopenia [Recovered/Resolved]
  - Hypothyroidism [Recovered/Resolved]
